FAERS Safety Report 13673360 (Version 3)
Quarter: 2017Q4

REPORT INFORMATION
  Report Type: Spontaneous
  Country: GB (occurrence: GB)
  Receive Date: 20170621
  Receipt Date: 20171206
  Transmission Date: 20180320
  Serious: Yes (Life-Threatening, Hospitalization, Other)
  Sender: FDA-Public Use
  Company Number: GB-CIPLA LTD.-2017GB10529

PATIENT

DRUGS (13)
  1. SUMATRIPTAN SUCCINATE. [Concomitant]
     Active Substance: SUMATRIPTAN SUCCINATE
     Indication: PRODUCT USED FOR UNKNOWN INDICATION
     Dosage: UNK
     Route: 065
  2. CITALOPRAM [Suspect]
     Active Substance: CITALOPRAM HYDROBROMIDE
     Indication: ANXIETY
     Dosage: 10 MG, UNK
     Route: 048
     Dates: start: 20170201
  3. CITALOPRAM [Suspect]
     Active Substance: CITALOPRAM HYDROBROMIDE
     Dosage: 20 MG, UNK
     Route: 048
     Dates: start: 2017
  4. QUETIAPINE. [Suspect]
     Active Substance: QUETIAPINE
     Indication: ANXIETY
     Dosage: 100 MG, UNK
     Route: 048
     Dates: start: 20170407, end: 20170421
  5. DIAZEPAM. [Concomitant]
     Active Substance: DIAZEPAM
     Indication: PRODUCT USED FOR UNKNOWN INDICATION
     Dosage: UNK
     Route: 065
  6. PARACETAMOL [Concomitant]
     Active Substance: ACETAMINOPHEN
     Indication: PRODUCT USED FOR UNKNOWN INDICATION
     Dosage: UNK
     Route: 065
  7. CITALOPRAM [Suspect]
     Active Substance: CITALOPRAM HYDROBROMIDE
     Dosage: 30 MG, UNK
     Route: 048
     Dates: end: 20170519
  8. DOXYCYCLINE. [Concomitant]
     Active Substance: DOXYCYCLINE
     Indication: PRODUCT USED FOR UNKNOWN INDICATION
     Dosage: UNK
     Route: 065
  9. ZOPICLONE [Concomitant]
     Active Substance: ZOPICLONE
     Indication: PRODUCT USED FOR UNKNOWN INDICATION
     Dosage: UNK
     Route: 065
  10. BOOTS IBUPROFEN [Concomitant]
     Indication: PRODUCT USED FOR UNKNOWN INDICATION
     Dosage: UNK
     Route: 065
  11. MIGRALEVE [Concomitant]
     Active Substance: ACETAMINOPHEN\BUCLIZINE HYDROCHLORIDE\CODEINE
     Indication: PRODUCT USED FOR UNKNOWN INDICATION
     Dosage: UNK
     Route: 065
  12. AMITRIPTYLINE HYDROCHLORIDE. [Suspect]
     Active Substance: AMITRIPTYLINE HYDROCHLORIDE
     Indication: NEURALGIA
     Dosage: 35 MG, UNK
     Route: 048
     Dates: start: 20130301, end: 20170501
  13. AMITRIPTYLINE HYDROCHLORIDE. [Suspect]
     Active Substance: AMITRIPTYLINE HYDROCHLORIDE
     Indication: ANXIETY

REACTIONS (20)
  - Personality change [Unknown]
  - Feeling abnormal [Unknown]
  - Oedema peripheral [Recovered/Resolved with Sequelae]
  - Agitation [Not Recovered/Not Resolved]
  - Dizziness [Not Recovered/Not Resolved]
  - Restlessness [Recovering/Resolving]
  - Nausea [Not Recovered/Not Resolved]
  - Oedema [Recovering/Resolving]
  - Neuralgia [Not Recovered/Not Resolved]
  - Panic reaction [Recovered/Resolved]
  - Suicide attempt [Recovered/Resolved with Sequelae]
  - Withdrawal syndrome [Not Recovered/Not Resolved]
  - Suicidal ideation [Recovered/Resolved with Sequelae]
  - Anxiety [Recovering/Resolving]
  - Intentional self-injury [Recovered/Resolved with Sequelae]
  - Paraesthesia [Unknown]
  - Localised oedema [Recovered/Resolved with Sequelae]
  - Restless legs syndrome [Not Recovered/Not Resolved]
  - Pain [Not Recovered/Not Resolved]
  - Headache [Unknown]

NARRATIVE: CASE EVENT DATE: 2017
